FAERS Safety Report 11163913 (Version 3)
Quarter: 2016Q2

REPORT INFORMATION
  Report Type: Spontaneous
  Country: IT (occurrence: IT)
  Receive Date: 20150604
  Receipt Date: 20160422
  Transmission Date: 20160815
  Serious: Yes (Life-Threatening, Hospitalization)
  Sender: FDA-Public Use
  Company Number: IT-ROCHE-1588197

PATIENT
  Age: 63 Year
  Sex: Female
  Weight: 74 kg

DRUGS (11)
  1. MABTHERA [Suspect]
     Active Substance: RITUXIMAB
     Dosage: 1 X 500 MG 50 ML VIAL
     Route: 042
     Dates: start: 20090101, end: 20141231
  2. PARACETAMOL [Concomitant]
     Active Substance: ACETAMINOPHEN
     Route: 048
  3. MEDROL [Concomitant]
     Active Substance: METHYLPREDNISOLONE
     Dosage: 16 MG TABLETS^ 20 TABLETS
     Route: 048
  4. LANSOPRAZOLE. [Concomitant]
     Active Substance: LANSOPRAZOLE
     Route: 048
  5. MABTHERA [Suspect]
     Active Substance: RITUXIMAB
     Indication: RHEUMATOID ARTHRITIS
     Dosage: 1 X 500 MG 50 ML AMPOULE
     Route: 042
     Dates: start: 20120601, end: 20141231
  6. MEDROL [Concomitant]
     Active Substance: METHYLPREDNISOLONE
     Route: 048
     Dates: start: 20120101, end: 20150316
  7. DIBASE [Concomitant]
     Active Substance: CHOLECALCIFEROL
     Indication: OSTEOPOROSIS
     Dosage: ORAL DROPS, SOLUTION?10,000 IU/ML BOTTLE WITH DROPPER
     Route: 048
  8. SOLU-MEDROL [Concomitant]
     Active Substance: METHYLPREDNISOLONE SODIUM SUCCINATE
     Dosage: 125 MG/2 ML 1 DUAL-CHAMBER VIAL
     Route: 030
  9. DIBASE [Concomitant]
     Active Substance: CHOLECALCIFEROL
     Dosage: ORAL DROPS, SOLUTION
     Route: 048
  10. LYRICA [Concomitant]
     Active Substance: PREGABALIN
     Dosage: 150 MG - ORAL USE^ 14 CAPSULES IN BLISTER PACK
     Route: 065
  11. TACHIPIRINA [Concomitant]
     Active Substance: ACETAMINOPHEN
     Route: 048

REACTIONS (7)
  - Septic shock [Recovered/Resolved with Sequelae]
  - Mitral valve incompetence [Recovered/Resolved with Sequelae]
  - Endocarditis [Recovering/Resolving]
  - Endocarditis [Recovered/Resolved with Sequelae]
  - Pneumonia [Unknown]
  - Endocarditis bacterial [Unknown]
  - Respiratory distress [Unknown]

NARRATIVE: CASE EVENT DATE: 20150316
